FAERS Safety Report 7881462-4 (Version None)
Quarter: 2011Q4

REPORT INFORMATION
  Report Type: 
  Country: None (occurrence: None)
  Receive Date: 20111101
  Receipt Date: 20110524
  Transmission Date: 20120403
  Serious: No
  Sender: FDA-Public Use
  Company Number: US-AMGEN-USASP2011027017

PATIENT
  Age: 60 Year
  Sex: Male
  Weight: 75.737 kg

DRUGS (8)
  1. PREDNISONE [Concomitant]
     Dosage: 1 MG, UNK
  2. LEVOTHYROXINE SODIUM [Concomitant]
     Dosage: 25 MUG, UNK
  3. ENBREL [Suspect]
     Indication: PRODUCT USED FOR UNKNOWN INDICATION
     Dosage: 50 MG, QWK
  4. IBUPROFEN [Concomitant]
     Dosage: 200 MG, UNK
  5. ADDERALL 5 [Concomitant]
     Dosage: 10 MG, UNK
  6. VITAMIN C                          /00008001/ [Concomitant]
     Dosage: 500 MG, UNK
  7. OMEGA 3                            /00931501/ [Concomitant]
     Dosage: 1000 MG, UNK
  8. VITAMIN D [Concomitant]
     Dosage: 1000 IU, UNK

REACTIONS (1)
  - PAIN IN EXTREMITY [None]
